FAERS Safety Report 10872027 (Version 1)
Quarter: 2015Q1

REPORT INFORMATION
  Report Type: Spontaneous
  Country: US (occurrence: US)
  Receive Date: 20150226
  Receipt Date: 20150226
  Transmission Date: 20150721
  Serious: Yes (Other)
  Sender: FDA-Public Use
  Company Number: US-MYLANLABS-2015M1005441

PATIENT

DRUGS (1)
  1. POTASSIUM CHLORIDE TABLET [Suspect]
     Active Substance: POTASSIUM CHLORIDE
     Dosage: UNK MEQ, UNK
     Route: 048

REACTIONS (3)
  - Foreign body [Not Recovered/Not Resolved]
  - Dysphagia [Not Recovered/Not Resolved]
  - Choking [Not Recovered/Not Resolved]
